FAERS Safety Report 6354033-9 (Version None)
Quarter: 2009Q3

REPORT INFORMATION
  Report Type: 
  Country: None (occurrence: None)
  Receive Date: 20090908
  Receipt Date: 20090610
  Transmission Date: 20100115
  Serious: Yes (Other)
  Sender: FDA-Public Use
  Company Number: MC200900332

PATIENT

DRUGS (1)
  1. CLEVIPREX [Suspect]

REACTIONS (3)
  - SHUNT BLOOD FLOW EXCESSIVE [None]
  - SYSTEMIC-PULMONARY ARTERY SHUNT [None]
  - VASODILATATION [None]
